FAERS Safety Report 4842511-0 (Version None)
Quarter: 2005Q4

REPORT INFORMATION
  Report Type: 
  Country: None (occurrence: None)
  Receive Date: 20051129
  Receipt Date: 20051116
  Transmission Date: 20060501
  Serious: Yes (Hospitalization)
  Sender: FDA-Public Use
  Company Number: 218090

PATIENT
  Age: 67 Year
  Sex: Female

DRUGS (6)
  1. AVASTIN [Suspect]
     Indication: FEMALE GENITAL TRACT FISTULA
     Dosage: 10 MG/KG, DAYS 1, 8, 15 , INTRAVENOUS
     Route: 042
     Dates: start: 20050119, end: 20050518
  2. CYCLOPHOSPHAMIDE [Suspect]
     Indication: FEMALE GENITAL TRACT FISTULA
     Dosage: 50 MG, QD, ORAL
     Route: 048
     Dates: start: 20050119, end: 20050518
  3. LOSEC (OMEPRAZOLE) [Concomitant]
  4. SENOKOT [Concomitant]
  5. COLACE (DOCUSATE SODIUM) [Concomitant]
  6. TYLENOL (ACETAMIINOPHEN) [Concomitant]

REACTIONS (5)
  - FEMALE GENITAL TRACT FISTULA [None]
  - MALIGNANT NEOPLASM PROGRESSION [None]
  - METASTASES TO LIVER [None]
  - PLEURAL EFFUSION [None]
  - RECTAL PERFORATION [None]
